FAERS Safety Report 4647306-9 (Version None)
Quarter: 2005Q2

REPORT INFORMATION
  Report Type: 
  Country: None (occurrence: None)
  Receive Date: 20050426
  Receipt Date: 20050412
  Transmission Date: 20051028
  Serious: Yes (Other)
  Sender: FDA-Public Use
  Company Number: 2005058411

PATIENT
  Sex: Female
  Weight: 29.0302 kg

DRUGS (4)
  1. BEXTRA [Suspect]
     Indication: HEADACHE
     Dosage: 20 MG (20 MG, 1 IN 1 D), ORAL
     Route: 048
     Dates: end: 20040901
  2. ALL OTHER THERAPEUTIC PRODUCTS (ALL OTHER THERAPEUTIC PRODUCTS) [Concomitant]
  3. CALCIUM (CALCIUM) [Concomitant]
  4. ASPIRIN [Concomitant]

REACTIONS (6)
  - BLISTER [None]
  - CHOLECYSTITIS INFECTIVE [None]
  - DRUG DOSE OMISSION [None]
  - DRY SKIN [None]
  - PULMONARY HYPERTENSION [None]
  - SKIN ULCER [None]
